FAERS Safety Report 24921618 (Version 1)
Quarter: 2025Q1

REPORT INFORMATION
  Report Type: Spontaneous
  Country: US (occurrence: None)
  Receive Date: 20250204
  Receipt Date: 20250204
  Transmission Date: 20250409
  Serious: Yes (Hospitalization)
  Sender: FDA-CTU
  Company Number: None

PATIENT
  Age: 8 Year
  Sex: Male
  Weight: 24.4 kg

DRUGS (2)
  1. CARBOPLATIN [Suspect]
     Active Substance: CARBOPLATIN
     Dates: end: 20250123
  2. VINCRISTINE SULFATE [Suspect]
     Active Substance: VINCRISTINE SULFATE
     Dates: end: 20250123

REACTIONS (6)
  - Pyrexia [None]
  - Viral upper respiratory tract infection [None]
  - Confusional state [None]
  - Pneumonia [None]
  - Abdominal pain [None]
  - Neutrophil count decreased [None]

NARRATIVE: CASE EVENT DATE: 20250129
